FAERS Safety Report 5729773-2 (Version None)
Quarter: 2008Q2

REPORT INFORMATION
  Report Type: 
  Country: None (occurrence: None)
  Receive Date: 20080501
  Receipt Date: 20080425
  Transmission Date: 20081010
  Serious: Yes (Hospitalization, Disabling, Other)
  Sender: FDA-Public Use
  Company Number: 2007JP005642

PATIENT
  Age: 55 Year
  Sex: Female
  Weight: 49.8 kg

DRUGS (13)
  1. TACROLIMUS CAPSULES(TACROLIMUS CAPSULES) TACROLIMUS CAPSULES(TACROLIMU [Suspect]
     Indication: LUPUS NEPHRITIS
     Dosage: 1 MG, ORAL 2 MG, ORAL 3 MG, ORAL 4 MG, ORAL
     Route: 048
     Dates: start: 20070509, end: 20070517
  2. TACROLIMUS CAPSULES(TACROLIMUS CAPSULES) TACROLIMUS CAPSULES(TACROLIMU [Suspect]
     Indication: LUPUS NEPHRITIS
     Dosage: 1 MG, ORAL 2 MG, ORAL 3 MG, ORAL 4 MG, ORAL
     Route: 048
     Dates: start: 20070518, end: 20070520
  3. TACROLIMUS CAPSULES(TACROLIMUS CAPSULES) TACROLIMUS CAPSULES(TACROLIMU [Suspect]
     Indication: LUPUS NEPHRITIS
     Dosage: 1 MG, ORAL 2 MG, ORAL 3 MG, ORAL 4 MG, ORAL
     Route: 048
     Dates: start: 20070521, end: 20070730
  4. TACROLIMUS CAPSULES(TACROLIMUS CAPSULES) TACROLIMUS CAPSULES(TACROLIMU [Suspect]
     Indication: LUPUS NEPHRITIS
     Dosage: 1 MG, ORAL 2 MG, ORAL 3 MG, ORAL 4 MG, ORAL
     Route: 048
     Dates: start: 20070731, end: 20070918
  5. PREDNISOLONE [Suspect]
     Indication: LUPUS NEPHRITIS
     Dosage: 10 MG, ORAL
     Route: 048
  6. LIPITOR (ATORVASTATIN CALCIUM) PER ORAL NOS [Concomitant]
  7. LANSOPRAZOLE [Concomitant]
  8. BAYASPIRIN PER ORAL NOS [Concomitant]
  9. ALFAROL (ALFACALCIDOL) PER ORAL NOS [Concomitant]
  10. ASPARA K (ASPARTRATE POTASSIUM) PER ORAL NOS [Concomitant]
  11. CALCIUM LACTATE (CALCIUM LACTATE) PER ORAL NOS [Concomitant]
  12. MITIGLINIDE (MITIGLINIDE) PER ORAL NOS [Concomitant]
  13. SELBEX (TEPRENONE) PER ORAL NOS [Concomitant]

REACTIONS (5)
  - CONDITION AGGRAVATED [None]
  - DIABETES MELLITUS [None]
  - LUNG INFECTION [None]
  - NEPHRITIS INTERSTITIAL [None]
  - PLEURAL EFFUSION [None]
